FAERS Safety Report 8873436 (Version 1)
Quarter: 2012Q4

REPORT INFORMATION
  Report Type: 
  Country: US (occurrence: US)
  Receive Date: 20121030
  Receipt Date: 20121030
  Transmission Date: 20130627
  Serious: Yes (Death)
  Sender: FDA-Public Use
  Company Number: US-ELI_LILLY_AND_COMPANY-US201210006893

PATIENT
  Sex: Male

DRUGS (4)
  1. ALIMTA [Suspect]
     Indication: LUNG NEOPLASM MALIGNANT
     Dosage: 800 mg, single
     Route: 065
     Dates: start: 20120904
  2. CARBOPLATIN [Concomitant]
  3. VITAMIN B12 [Concomitant]
  4. FOLIC ACID [Concomitant]

REACTIONS (1)
  - Death [Fatal]
